FAERS Safety Report 19483855 (Version 5)
Quarter: 2022Q2

REPORT INFORMATION
  Report Type: Report from Study
  Country: CN (occurrence: CN)
  Receive Date: 20210701
  Receipt Date: 20220422
  Transmission Date: 20220721
  Serious: Yes (Death, Hospitalization, Other)
  Sender: FDA-Public Use
  Company Number: CN-NOVARTISPH-NVSC2020CN275014

PATIENT
  Age: 41 Year
  Sex: Male
  Weight: 68 kg

DRUGS (18)
  1. ENTRESTO [Suspect]
     Active Substance: SACUBITRIL\VALSARTAN
     Indication: Cardiac failure
     Dosage: 50 MG, BID
     Route: 048
     Dates: start: 20200409, end: 20200410
  2. ENTRESTO [Suspect]
     Active Substance: SACUBITRIL\VALSARTAN
     Dosage: 25 MG, BID
     Route: 048
     Dates: start: 20200410, end: 20200413
  3. ENTRESTO [Suspect]
     Active Substance: SACUBITRIL\VALSARTAN
     Dosage: 50 MG, BID
     Route: 048
     Dates: start: 20200413, end: 2020
  4. HAEMOCOAGULASE [Concomitant]
     Indication: Anticoagulant therapy
     Dosage: 1 IU, BID
     Route: 065
     Dates: start: 20200909, end: 20200910
  5. CITICOLINE SODIUM [Concomitant]
     Active Substance: CITICOLINE SODIUM
     Indication: Nutritional supplementation
     Dosage: 0.5 G, QD
     Route: 065
     Dates: start: 20200909, end: 20200910
  6. SODIUM ACETATE [Concomitant]
     Active Substance: SODIUM ACETATE
     Indication: Fluid replacement
     Dosage: 500 ML, QD
     Route: 065
     Dates: start: 20200909, end: 20200910
  7. PHOSPHOLIPID [Concomitant]
     Active Substance: PHOSPHOLIPID
     Indication: Prophylaxis
     Dosage: 697.5 MG, QD
     Route: 065
  8. RABEPRAZOLE SODIUM [Concomitant]
     Active Substance: RABEPRAZOLE SODIUM
     Indication: Prophylaxis
     Dosage: 20 MG, BID
     Route: 065
     Dates: start: 20200909, end: 20200910
  9. ASCORBIC ACID [Concomitant]
     Active Substance: ASCORBIC ACID
     Indication: Product used for unknown indication
     Dosage: 2 G, QD
     Route: 065
     Dates: start: 20200909, end: 20200910
  10. POTASSIUM CHLORIDE [Concomitant]
     Active Substance: POTASSIUM CHLORIDE
     Indication: Mineral supplementation
     Dosage: 1.5 G, QD
     Route: 065
     Dates: start: 20200909, end: 20200912
  11. CEFOTIAM HYDROCHLORIDE [Concomitant]
     Active Substance: CEFOTIAM HYDROCHLORIDE
     Indication: Antiinflammatory therapy
     Dosage: 1.5 G, Q12H
     Route: 065
     Dates: start: 20200909, end: 20200910
  12. LANSOPRAZOLE [Concomitant]
     Active Substance: LANSOPRAZOLE
     Indication: Prophylaxis
     Dosage: 30 MG, BID
     Route: 065
     Dates: start: 20200910, end: 20200912
  13. AMBROXOL HYDROCHLORIDE [Concomitant]
     Active Substance: AMBROXOL HYDROCHLORIDE
     Indication: Productive cough
     Dosage: 30 MG, TID
     Route: 065
     Dates: start: 20200910, end: 20200912
  14. EDARAVONE [Concomitant]
     Active Substance: EDARAVONE
     Indication: Product used for unknown indication
     Dosage: 30 MG, BID
     Route: 065
     Dates: start: 20200910, end: 20200912
  15. CEFTAZIDIME [Concomitant]
     Active Substance: CEFTAZIDIME
     Indication: Antiinflammatory therapy
     Dosage: 2 G, Q12H
     Route: 065
     Dates: start: 20200910, end: 20200912
  16. ALBUMIN HUMAN [Concomitant]
     Active Substance: ALBUMIN HUMAN
     Indication: Product used for unknown indication
     Dosage: 10 MG, BID
     Route: 065
     Dates: start: 20200911, end: 20200912
  17. ASPIRIN [Concomitant]
     Active Substance: ASPIRIN
     Indication: Thrombosis prophylaxis
     Dosage: 100 MG, QD
     Route: 065
     Dates: start: 20200911, end: 20200912
  18. IBUPROFEN [Concomitant]
     Active Substance: IBUPROFEN
     Indication: Analgesic therapy
     Dosage: 300 MG, TID
     Route: 065
     Dates: start: 20200911, end: 20200912

REACTIONS (7)
  - Cardiac failure [Fatal]
  - Subarachnoid haemorrhage [Not Recovered/Not Resolved]
  - Syncope [Unknown]
  - Hydrocephalus [Unknown]
  - Hypertension [Unknown]
  - Headache [Unknown]
  - Dizziness [Unknown]

NARRATIVE: CASE EVENT DATE: 20200901
